FAERS Safety Report 8179477-4 (Version None)
Quarter: 2012Q1

REPORT INFORMATION
  Report Type: 
  Country: None (occurrence: None)
  Receive Date: 20120229
  Receipt Date: 20120221
  Transmission Date: 20120608
  Serious: Yes (Other)
  Sender: FDA-Public Use
  Company Number: ADR-2012-00427

PATIENT
  Sex: Male

DRUGS (4)
  1. MORPHINE [Concomitant]
  2. BACLOFEN [Suspect]
     Indication: PAIN
  3. BACLOFEN [Suspect]
     Indication: POST LAMINECTOMY SYNDROME
  4. FOSAMAX [Concomitant]

REACTIONS (5)
  - DEVICE BREAKAGE [None]
  - FLUID RETENTION [None]
  - SUTURE RELATED COMPLICATION [None]
  - WEIGHT INCREASED [None]
  - DEVICE DISLOCATION [None]
